FAERS Safety Report 6170024-5 (Version None)
Quarter: 2009Q2

REPORT INFORMATION
  Report Type: 
  Country: None (occurrence: None)
  Receive Date: 20090424
  Receipt Date: 20090409
  Transmission Date: 20091009
  Serious: Yes (Death, Hospitalization)
  Sender: FDA-Public Use
  Company Number: 2009FR0010

PATIENT
  Age: 5 Year
  Sex: Male

DRUGS (8)
  1. ORFADIN [Suspect]
     Indication: TYROSINAEMIA
     Dosage: 2 MG/KG, 25 MG TOTAL DAILY DOSE
     Route: 048
     Dates: start: 20080507, end: 20090201
  2. PHOSPHORENOUS (PHOSPHORUS) (DROPS) [Concomitant]
  3. CALCIDOSE (CALCIUM) [Concomitant]
  4. BICARBONATE DE SODIUM(SODIUM BICARBONATE) [Concomitant]
  5. UN-ALPHA (VITAMIN D) (DROPS) [Concomitant]
  6. LEVOCARNYL (L-CARNITINE) [Concomitant]
  7. FEROSTRANE (IRON) [Concomitant]
  8. SPECIAFOLDINE (FOLATE) [Concomitant]

REACTIONS (3)
  - ACUTE HEPATIC FAILURE [None]
  - COMPLICATIONS OF TRANSPLANTED LIVER [None]
  - POST PROCEDURAL HAEMORRHAGE [None]
